FAERS Safety Report 5231737-2 (Version None)
Quarter: 2007Q1

REPORT INFORMATION
  Report Type: 
  Country: None (occurrence: None)
  Receive Date: 20070206
  Receipt Date: 20070125
  Transmission Date: 20070707
  Serious: Yes (Other)
  Sender: FDA-Public Use
  Company Number: IE-PFIZER INC-2007007301

PATIENT
  Age: 6 Year
  Sex: Male
  Weight: 21.4 kg

DRUGS (8)
  1. PRO-EPANUTIN [Suspect]
     Indication: CONVULSION
     Route: 051
     Dates: start: 20070108, end: 20070112
  2. CEFTRIAXONE [Concomitant]
     Route: 042
     Dates: start: 20070108, end: 20070112
  3. GENTAMICIN SULFATE [Concomitant]
     Route: 042
     Dates: start: 20070108, end: 20070110
  4. ACYCLOVIR [Concomitant]
     Route: 042
     Dates: start: 20070108, end: 20070112
  5. PARACETAMOL [Concomitant]
     Indication: ANTIPYRESIS
     Route: 048
     Dates: start: 20070108, end: 20070112
  6. PARACETAMOL [Concomitant]
     Indication: ANALGESIC EFFECT
  7. IBUPROFEN [Concomitant]
     Indication: ANTIPYRESIS
     Route: 048
     Dates: start: 20070108, end: 20070112
  8. IBUPROFEN [Concomitant]
     Indication: ANALGESIC EFFECT

REACTIONS (2)
  - DRUG LEVEL BELOW THERAPEUTIC [None]
  - INCORRECT DOSE ADMINISTERED [None]
